FAERS Safety Report 23759683 (Version 1)
Quarter: 2024Q2

REPORT INFORMATION
  Report Type: Spontaneous
  Country: US (occurrence: US)
  Receive Date: 20240419
  Receipt Date: 20240419
  Transmission Date: 20240715
  Serious: Yes (Hospitalization)
  Sender: FDA-Public Use
  Company Number: US-AVET LIFESCIENCES LTD-2024-AVET-000124

PATIENT

DRUGS (2)
  1. BUPROPION HYDROCHLORIDE [Suspect]
     Active Substance: BUPROPION HYDROCHLORIDE
     Indication: Product used for unknown indication
     Dosage: 100MG ORALLY ONCE DAILY, PILL MARKINGS FOR 100MG: 192 ON ONE SIDE AND OTHER SIDE IS BLANK.
     Route: 048
  2. BUPROPION HYDROCHLORIDE [Suspect]
     Active Substance: BUPROPION HYDROCHLORIDE
     Indication: Product used for unknown indication
     Dosage: EXTENDED RELEASE TABLET, PILL MARKING FOR BUPROPION HYDROCHLORIDE EXTENDEDRELEASE TABLETS (XL) 150MG
     Route: 065

REACTIONS (3)
  - Infection [Unknown]
  - Pruritus [Unknown]
  - Urticaria [Unknown]
